FAERS Safety Report 9466622 (Version 1)
Quarter: 2013Q3

REPORT INFORMATION
  Report Type: Spontaneous
  Country: GB (occurrence: GB)
  Receive Date: 20130820
  Receipt Date: 20130820
  Transmission Date: 20140515
  Serious: Yes (Other)
  Sender: FDA-Public Use
  Company Number: PHFR2013GB004640

PATIENT
  Age: 3 Decade
  Sex: Male

DRUGS (4)
  1. CLOZARIL [Suspect]
     Dosage: UNK UKN, UNK
     Route: 048
  2. OLANZAPINE [Concomitant]
     Dosage: UNK UKN, UNK
  3. FERROUS SULPHATE [Concomitant]
     Dosage: UNK UKN, UNK
  4. SENNA [Concomitant]
     Dosage: UNK UKN, UNK

REACTIONS (1)
  - Pericarditis [Unknown]
